FAERS Safety Report 15433778 (Version 2)
Quarter: 2018Q3

REPORT INFORMATION
  Report Type: Spontaneous
  Country: JP (occurrence: JP)
  Receive Date: 20180927
  Receipt Date: 20180927
  Transmission Date: 20181010
  Serious: Yes (Other)
  Sender: FDA-Public Use
  Company Number: JP-TEVA-2017-JP-004217J

PATIENT
  Age: 6 Decade
  Sex: Male

DRUGS (2)
  1. SALAZOSULFAPYRIDINE ENTERIC COATED TABLET 250MG ^TEVA^ [Suspect]
     Active Substance: SULFASALAZINE
     Indication: RHEUMATOID ARTHRITIS
     Dosage: 1000 MILLIGRAM DAILY;
     Route: 048
     Dates: start: 201708
  2. EPAROSE [Concomitant]
     Indication: HYPERLIPIDAEMIA
     Dosage: 1800 MILLIGRAM DAILY;
     Route: 048

REACTIONS (4)
  - Drug effect incomplete [Unknown]
  - Medication residue present [Unknown]
  - Rheumatoid arthritis [Unknown]
  - Product substitution issue [Unknown]

NARRATIVE: CASE EVENT DATE: 201708
